FAERS Safety Report 25824296 (Version 1)
Quarter: 2025Q3

REPORT INFORMATION
  Report Type: Spontaneous
  Country: US (occurrence: US)
  Receive Date: 20250919
  Receipt Date: 20250919
  Transmission Date: 20251021
  Serious: No
  Sender: VERTEX
  Company Number: US-VERTEX PHARMACEUTICALS-2025-015254

PATIENT

DRUGS (1)
  1. JOURNAVX [Suspect]
     Active Substance: SUZETRIGINE
     Indication: Pain
     Route: 048

REACTIONS (7)
  - Insomnia [Recovered/Resolved]
  - Feeling abnormal [Unknown]
  - Mental impairment [Unknown]
  - Muscular weakness [Unknown]
  - Abulia [Unknown]
  - Decreased appetite [Unknown]
  - Rash [Unknown]
